FAERS Safety Report 19397724 (Version 1)
Quarter: 2021Q2

REPORT INFORMATION
  Report Type: Spontaneous
  Country: US (occurrence: US)
  Receive Date: 20210610
  Receipt Date: 20210610
  Transmission Date: 20210717
  Serious: Yes (Other)
  Sender: FDA-Public Use
  Company Number: US-DRREDDYS-USA/USA/21/0136452

PATIENT
  Age: 27 Year
  Sex: Female

DRUGS (1)
  1. ZENATANE [Suspect]
     Active Substance: ISOTRETINOIN
     Indication: PRODUCT USED FOR UNKNOWN INDICATION
     Dosage: QD, RMA ISSUE DATE: 15/APRIL/2021 12:30:50 PM
     Dates: start: 20210415, end: 20210425

REACTIONS (3)
  - Product dose omission issue [Unknown]
  - Exposure during pregnancy [Unknown]
  - Hallucination [Recovered/Resolved]

NARRATIVE: CASE EVENT DATE: 202104
